FAERS Safety Report 18672937 (Version 3)
Quarter: 2021Q1

REPORT INFORMATION
  Report Type: Spontaneous
  Country: PA (occurrence: PA)
  Receive Date: 20201229
  Receipt Date: 20210217
  Transmission Date: 20210419
  Serious: Yes (Other)
  Sender: FDA-Public Use
  Company Number: PA-AMGEN-PANSP2020211276

PATIENT
  Age: 35 Year
  Sex: Female

DRUGS (1)
  1. ENBREL [Suspect]
     Active Substance: ETANERCEPT
     Indication: PRODUCT USED FOR UNKNOWN INDICATION
     Dosage: UNK
     Route: 065

REACTIONS (9)
  - Device use issue [Unknown]
  - Back pain [Unknown]
  - Fracture [Unknown]
  - Asthenia [Unknown]
  - Injection site pain [Unknown]
  - Syncope [Unknown]
  - Painful respiration [Unknown]
  - Tachycardia [Unknown]
  - Chest pain [Unknown]
